FAERS Safety Report 15676249 (Version 1)
Quarter: 2018Q4

REPORT INFORMATION
  Report Type: Report from Study
  Country: AR (occurrence: AR)
  Receive Date: 20181130
  Receipt Date: 20181130
  Transmission Date: 20190205
  Serious: Yes (Other)
  Sender: FDA-Public Use
  Company Number: PHHY2015AR014408

PATIENT
  Age: 52 Year
  Sex: Female

DRUGS (4)
  1. AFINITOR [Suspect]
     Active Substance: EVEROLIMUS
     Indication: BREAST CANCER
  2. AFINITOR [Suspect]
     Active Substance: EVEROLIMUS
     Indication: BREAST CANCER METASTATIC
     Dosage: 10 MG, QD
     Route: 065
     Dates: start: 20141106
  3. AFINITOR [Suspect]
     Active Substance: EVEROLIMUS
     Indication: DYSPHONIA
     Dosage: UNK
  4. AUREOMYCIN [Concomitant]
     Active Substance: CHLORTETRACYCLINE HYDROCHLORIDE
     Indication: PRODUCT USED FOR UNKNOWN INDICATION
     Dosage: 1 DF, QD
     Route: 065

REACTIONS (17)
  - Vulvovaginitis [Unknown]
  - Blood cholesterol increased [Not Recovered/Not Resolved]
  - Mouth ulceration [Not Recovered/Not Resolved]
  - Tongue ulceration [Not Recovered/Not Resolved]
  - Urinary tract infection [Recovering/Resolving]
  - Pyrexia [Recovering/Resolving]
  - Skin exfoliation [Unknown]
  - Stomatitis [Recovered/Resolved]
  - Gastroenteritis [Recovering/Resolving]
  - Gingival ulceration [Not Recovered/Not Resolved]
  - Lip swelling [Recovering/Resolving]
  - Vulvovaginal pain [Unknown]
  - Blood glucose increased [Recovering/Resolving]
  - Vulvovaginal pruritus [Unknown]
  - Diabetes mellitus [Unknown]
  - Stomatitis [Recovering/Resolving]
  - Product use in unapproved indication [Unknown]

NARRATIVE: CASE EVENT DATE: 20141106
